FAERS Safety Report 15625413 (Version 1)
Quarter: 2018Q4

REPORT INFORMATION
  Report Type: Report from Study
  Country: KR (occurrence: KR)
  Receive Date: 20181116
  Receipt Date: 20181116
  Transmission Date: 20190205
  Serious: Yes (Death)
  Sender: FDA-Public Use
  Company Number: KR-ASTRAZENECA-2018SF47638

PATIENT
  Age: 28673 Day
  Sex: Female

DRUGS (21)
  1. AZD6094 [Suspect]
     Active Substance: SAVOLITINIB
     Indication: NON-SMALL CELL LUNG CANCER
     Route: 048
     Dates: start: 20180927
  2. LEXAPRO [Concomitant]
     Active Substance: ESCITALOPRAM OXALATE
     Indication: ANXIETY
     Route: 048
     Dates: start: 20180716
  3. STILLEN [Concomitant]
     Indication: GASTRITIS
     Route: 048
     Dates: start: 20180913
  4. TAGRISSO [Suspect]
     Active Substance: OSIMERTINIB
     Indication: NON-SMALL CELL LUNG CANCER
     Route: 048
     Dates: start: 20161108, end: 20161119
  5. AZD6094 [Suspect]
     Active Substance: SAVOLITINIB
     Indication: NON-SMALL CELL LUNG CANCER
     Route: 048
     Dates: start: 20161129, end: 20180620
  6. MEGACE-F [Concomitant]
     Indication: DECREASED APPETITE
     Route: 048
     Dates: start: 20180329, end: 20180411
  7. MEGACE-F [Concomitant]
     Indication: DECREASED APPETITE
     Route: 048
     Dates: start: 20180524, end: 20180606
  8. SOLONDO [Concomitant]
     Active Substance: PREDNISOLONE
     Indication: PARONYCHIA
     Route: 048
     Dates: start: 20180913
  9. TAGRISSO [Suspect]
     Active Substance: OSIMERTINIB
     Indication: NON-SMALL CELL LUNG CANCER
     Route: 048
     Dates: start: 20180703, end: 20180912
  10. SOLONDO [Concomitant]
     Active Substance: PREDNISOLONE
     Indication: PARONYCHIA
     Route: 048
     Dates: start: 20180719, end: 20180801
  11. AZD6094 [Suspect]
     Active Substance: SAVOLITINIB
     Indication: NON-SMALL CELL LUNG CANCER
     Route: 048
     Dates: start: 20180703, end: 20180912
  12. MEGACE-F [Concomitant]
     Indication: DECREASED APPETITE
     Route: 048
     Dates: start: 20171109, end: 20171115
  13. MEGACE-F [Concomitant]
     Indication: DECREASED APPETITE
     Route: 048
     Dates: start: 20180302, end: 20180315
  14. AZD6094 [Suspect]
     Active Substance: SAVOLITINIB
     Indication: NON-SMALL CELL LUNG CANCER
     Route: 048
     Dates: start: 20161108, end: 20161119
  15. MEGACE-F [Concomitant]
     Indication: DECREASED APPETITE
     Route: 048
     Dates: start: 20180913
  16. ALPRAM [Concomitant]
     Active Substance: ALPRAZOLAM
     Indication: ANXIETY
     Route: 048
     Dates: start: 20180629
  17. STILLEN [Concomitant]
     Indication: GASTRITIS
     Route: 048
     Dates: start: 20180719, end: 20180801
  18. TAGRISSO [Suspect]
     Active Substance: OSIMERTINIB
     Indication: NON-SMALL CELL LUNG CANCER
     Route: 048
     Dates: start: 20161129, end: 20180620
  19. TAGRISSO [Suspect]
     Active Substance: OSIMERTINIB
     Indication: NON-SMALL CELL LUNG CANCER
     Route: 048
     Dates: start: 20180927
  20. LEXAPRO [Concomitant]
     Active Substance: ESCITALOPRAM OXALATE
     Indication: ANXIETY
     Route: 048
     Dates: start: 20180629, end: 20180715
  21. MEGACE-F [Concomitant]
     Indication: DECREASED APPETITE
     Route: 048
     Dates: start: 20180719, end: 20180801

REACTIONS (1)
  - Death [Fatal]

NARRATIVE: CASE EVENT DATE: 20181109
